FAERS Safety Report 8337526-4 (Version None)
Quarter: 2012Q2

REPORT INFORMATION
  Report Type: 
  Country: None (occurrence: None)
  Receive Date: 20120504
  Receipt Date: 20110825
  Transmission Date: 20120825
  Serious: No
  Sender: FDA-Public Use
  Company Number: US-TEVA-2011004466

PATIENT
  Sex: Female
  Weight: 79.45 kg

DRUGS (9)
  1. NUVIGIL [Suspect]
     Indication: PANIC ATTACK
     Dosage: 62.5 MILLIGRAM;
     Route: 048
     Dates: start: 20110825
  2. OXYCONTIN [Concomitant]
     Dates: start: 20060101
  3. BONIVA [Concomitant]
     Dates: start: 20080101
  4. ESTRATEST ES [Concomitant]
     Dates: start: 20060101
  5. VITAMIN D [Concomitant]
     Dates: start: 20080101
  6. NIRAVAM [Concomitant]
     Dates: start: 20050101
  7. VICODIN [Concomitant]
  8. PROMETRIUM [Concomitant]
     Dates: start: 20060101
  9. NUVIGIL [Suspect]
     Indication: ANXIETY
     Dosage: 125 MILLIGRAM;
     Route: 048
     Dates: start: 20110824, end: 20110825

REACTIONS (4)
  - HYPERHIDROSIS [None]
  - FEELING ABNORMAL [None]
  - ANXIETY [None]
  - SPEECH DISORDER [None]
